FAERS Safety Report 13431745 (Version 5)
Quarter: 2017Q3

REPORT INFORMATION
  Report Type: Report from Study
  Country: GR (occurrence: GR)
  Receive Date: 20170412
  Receipt Date: 20170721
  Transmission Date: 20171127
  Serious: Yes (Hospitalization)
  Sender: FDA-Public Use
  Company Number: GR-SA-2017SA063037

PATIENT
  Age: 30 Year
  Sex: Female
  Weight: 65 kg

DRUGS (1)
  1. LEMTRADA [Suspect]
     Active Substance: ALEMTUZUMAB
     Indication: MULTIPLE SCLEROSIS RELAPSE
     Route: 041
     Dates: start: 20170320, end: 20170322

REACTIONS (7)
  - Blood lactate dehydrogenase increased [Recovered/Resolved]
  - Rash macular [Recovered/Resolved]
  - Rash macular [Recovered/Resolved]
  - Blood lactate dehydrogenase increased [Recovered/Resolved]
  - Rash macular [Recovered/Resolved]
  - Thrombocytopenia [Recovered/Resolved]
  - Rash macular [Recovered/Resolved]

NARRATIVE: CASE EVENT DATE: 20170321
